FAERS Safety Report 13752942 (Version 1)
Quarter: 2017Q3

REPORT INFORMATION
  Report Type: Spontaneous
  Country: US (occurrence: US)
  Receive Date: 20170713
  Receipt Date: 20170713
  Transmission Date: 20171127
  Serious: No
  Sender: FDA-Public Use
  Company Number: None

PATIENT
  Sex: Female
  Weight: 52.66 kg

DRUGS (1)
  1. ZOLEDRONIC ACID 5MG/100ML GENERIC [Suspect]
     Active Substance: ZOLEDRONIC ACID
     Dosage: 5MG YEARLY IV
     Route: 042

REACTIONS (1)
  - Fracture [None]
